FAERS Safety Report 24880993 (Version 7)
Quarter: 2025Q4

REPORT INFORMATION
  Report Type: Report from Study
  Country: EU (occurrence: EU)
  Receive Date: 20250124
  Receipt Date: 20251211
  Transmission Date: 20260118
  Serious: Yes (Other)
  Sender: ABBVIE
  Company Number: EU-ABBVIE-6015502

PATIENT
  Age: 74 Year
  Sex: Female

DRUGS (14)
  1. CARBIDOPA\LEVODOPA [Suspect]
     Active Substance: CARBIDOPA\LEVODOPA
     Indication: Multiple system atrophy
     Dosage: 20 MG + 5 MG?FREQUENCY TEXT: MORN:11.5CC;MAIN:3.3CC/H;EXTRA:4CC; LAST ADMIN DATE: 2024
     Route: 050
     Dates: start: 20240717
  2. CARBIDOPA\LEVODOPA [Suspect]
     Active Substance: CARBIDOPA\LEVODOPA
     Dosage: 20 MG + 5 MG ,FREQUENCY TEXT: MORN:11.5CC;MAIN:3.5CC/H;EXTRA:4CC?FIRST ADMIN DATE: 2024
     Route: 050
     Dates: end: 20250117
  3. CARBIDOPA\LEVODOPA [Suspect]
     Active Substance: CARBIDOPA\LEVODOPA
     Dosage: 20 MG + 5 MG?LAST ADMIN DATE: 2024?FREQUENCY TEXT: MORN:7CC;MAIN:2.6CC/H;EXTRA:1CC
     Route: 050
     Dates: start: 20240306
  4. CARBIDOPA\LEVODOPA [Suspect]
     Active Substance: CARBIDOPA\LEVODOPA
     Dosage: 20 MG + 5 MG (VIA PEG)?MORN:11.5CC;MAIN:3.5CC/H;EXTRA:4CC
     Route: 050
     Dates: start: 20250117, end: 20250220
  5. CARBIDOPA\LEVODOPA [Suspect]
     Active Substance: CARBIDOPA\LEVODOPA
     Dosage: 20 MG + 5 MG?FIRST ADMIN DATE: 2025
     Route: 050
     Dates: end: 202511
  6. CARBIDOPA\LEVODOPA [Suspect]
     Active Substance: CARBIDOPA\LEVODOPA
     Dosage: 20 MG + 5 MG?MORNING 9.8CC, CONTINUOUS 3.5CC/H AND EXTRA 4CC
     Route: 050
     Dates: start: 202511
  7. CARBIDOPA\LEVODOPA [Suspect]
     Active Substance: CARBIDOPA\LEVODOPA
     Dosage: 20 MG + 5 MG?LAST ADMIN DATE: 2025
     Route: 050
     Dates: start: 20250220
  8. CLONAZEPAM [Concomitant]
     Active Substance: CLONAZEPAM
     Indication: Product used for unknown indication
     Dosage: 1 TABLET?FORM STRENGTH: 0.5 MILLIGRAM ?FREQUENCY TEXT: AT BEDTIME ?START DATE: BEFORE DUODOPA
  9. CHOLECALCIFEROL [Concomitant]
     Active Substance: CHOLECALCIFEROL
     Indication: Product used for unknown indication
     Dosage: 22400 U/MONTH?START DATE: BEFORE DUODOPA
  10. BETAHISTINE [Concomitant]
     Active Substance: BETAHISTINE
     Indication: Product used for unknown indication
     Dosage: 2 TABLET?FORM STRENGTH: 24 MILLIGRAM?START DATE: BEFORE DUODOPA
  11. SERTRALINE [Concomitant]
     Active Substance: SERTRALINE HYDROCHLORIDE
     Indication: Depression
     Dosage: 1 TABLET?FORM STRENGTH: 50 MILLIGRAM?FREQUENCY: IN THE MORNING?START DATE: BEFORE DUODOPA
  12. LEVETIRACETAM [Concomitant]
     Active Substance: LEVETIRACETAM
     Indication: Status epilepticus
     Dosage: 2 TABLET?FORM STRENGTH: 500 MILLIGRAM ?START DATE: BEFORE DUODOPA
  13. PANTOPRAZOLE [Concomitant]
     Active Substance: PANTOPRAZOLE
     Indication: Product used for unknown indication
     Dosage: 2 TABLET?FORM STRENGTH: 20 MILLIGRAM?START DATE: BEFORE DUODOPA
  14. SINEMET CR [Concomitant]
     Active Substance: CARBIDOPA\LEVODOPA
     Indication: Multiple system atrophy
     Dosage: 1 TABLET?FREQUENCY: AT BEDTIME?START DATE: BEFORE DUODOPA
     Route: 048

REACTIONS (7)
  - Intestinal ulcer [Recovered/Resolved]
  - Decreased appetite [Recovering/Resolving]
  - Bezoar [Recovered/Resolved]
  - Localised oedema [Recovered/Resolved]
  - Off label use [Recovered/Resolved]
  - Weight decreased [Recovering/Resolving]
  - Abdominal pain [Recovered/Resolved]

NARRATIVE: CASE EVENT DATE: 20241101
